FAERS Safety Report 4310224-X (Version None)
Quarter: 2004Q1

REPORT INFORMATION
  Report Type: 
  Country: None (occurrence: None)
  Receive Date: 20040301
  Receipt Date: 20040301
  Transmission Date: 20041129
  Serious: No
  Sender: FDA-Public Use
  Company Number: None

PATIENT
  Sex: Female
  Weight: 79.7 kg

DRUGS (12)
  1. DOFETILIDE 250 MCG [Suspect]
     Indication: ATRIAL FIBRILLATION
     Dosage: 250 MCG TWICE DAIL ORAL
     Route: 048
     Dates: start: 20040224, end: 20040225
  2. ASPIRIN [Concomitant]
  3. FOLIC ACID [Concomitant]
  4. AMARYL [Concomitant]
  5. GLUCOSAMINE/CHONDROITIN [Concomitant]
  6. LANTUS [Concomitant]
  7. METFORMIN [Concomitant]
  8. MULTI-VITAMIN [Concomitant]
  9. PROTONIX [Concomitant]
  10. ZOCOR [Concomitant]
  11. ADVAIR DISKUS 100/50 [Concomitant]
  12. WARFARIN SODIUM [Concomitant]

REACTIONS (4)
  - ATRIAL FIBRILLATION [None]
  - CARDIO-RESPIRATORY ARREST [None]
  - TORSADE DE POINTES [None]
  - VENTRICULAR FIBRILLATION [None]
